FAERS Safety Report 4266867-5 (Version None)
Quarter: 2004Q1

REPORT INFORMATION
  Report Type: 
  Country: None (occurrence: None)
  Receive Date: 20040108
  Receipt Date: 20040108
  Transmission Date: 20041129
  Serious: No
  Sender: FDA-Public Use
  Company Number: None

PATIENT
  Sex: Female
  Weight: 124.5 kg

DRUGS (10)
  1. VANCOMYCIN [Suspect]
     Indication: OSTEOMYELITIS ACUTE
     Dosage: 1.9 GM EVERY 48H INTRAVENOUS
     Route: 042
     Dates: start: 20031130, end: 20040105
  2. INVANZ [Concomitant]
  3. AMILORIDE HCL AND HYDROCHLOROTHIAZIDE [Concomitant]
  4. LASIX [Concomitant]
  5. XALATAN [Concomitant]
  6. HUMUN INSULIN LENTE [Concomitant]
  7. LEXAPRO [Concomitant]
  8. LOTREL [Concomitant]
  9. TLENOL [Concomitant]
  10. DARVOCET-N 100 [Concomitant]

REACTIONS (1)
  - RASH [None]
